FAERS Safety Report 12705793 (Version 1)
Quarter: 2016Q3

REPORT INFORMATION
  Report Type: Spontaneous
  Country: CN (occurrence: CN)
  Receive Date: 20160901
  Receipt Date: 20160901
  Transmission Date: 20161109
  Serious: Yes (Other)
  Sender: FDA-Public Use
  Company Number: CN-PFIZER INC-2016405206

PATIENT
  Age: 55 Year
  Sex: Male
  Weight: 65 kg

DRUGS (2)
  1. CYCLOPHOSPHAMIDE. [Suspect]
     Active Substance: CYCLOPHOSPHAMIDE
     Indication: T-CELL LYMPHOMA
     Dosage: 0.8 G, UNK
     Route: 041
     Dates: start: 20150924, end: 20150924
  2. PHARMORUBICIN [Suspect]
     Active Substance: EPIRUBICIN
     Indication: T-CELL LYMPHOMA
     Dosage: 60 UNK, UNK
     Route: 041
     Dates: start: 20150924, end: 20150924

REACTIONS (2)
  - Hepatic function abnormal [Recovering/Resolving]
  - Bone marrow failure [Recovering/Resolving]

NARRATIVE: CASE EVENT DATE: 20150929
